FAERS Safety Report 4641294-7 (Version None)
Quarter: 2005Q2

REPORT INFORMATION
  Report Type: 
  Country: None (occurrence: None)
  Receive Date: 20050420
  Receipt Date: 20050420
  Transmission Date: 20051028
  Serious: Yes (Life-Threatening)
  Sender: FDA-Public Use
  Company Number: None

PATIENT
  Age: 46 Year
  Sex: Female

DRUGS (1)
  1. LORAZEPAM [Suspect]
     Dosage: 1 MG IV X 2 DOSES (ONE HOUR APART)
     Route: 042
     Dates: start: 20050219

REACTIONS (2)
  - BRONCHOSPASM [None]
  - LARYNGOSPASM [None]
